FAERS Safety Report 7728835-8 (Version None)
Quarter: 2011Q3

REPORT INFORMATION
  Report Type: 
  Country: None (occurrence: None)
  Receive Date: 20110906
  Receipt Date: 20110214
  Transmission Date: 20111222
  Serious: No
  Sender: FDA-Public Use
  Company Number: US-BAYER-2011-015380

PATIENT
  Sex: Female

DRUGS (2)
  1. MIRENA [Suspect]
     Indication: CONTRACEPTION
     Dosage: 20 MCG/24HR, CONT
     Route: 015
  2. IBUPROFEN [Concomitant]
     Dosage: UNK
     Dates: start: 20110214

REACTIONS (3)
  - UTERINE CERVIX STENOSIS [None]
  - DEVICE DIFFICULT TO USE [None]
  - PAIN [None]
